FAERS Safety Report 21917702 (Version 2)
Quarter: 2024Q1

REPORT INFORMATION
  Report Type: Spontaneous
  Country: CH (occurrence: CH)
  Receive Date: 20230127
  Receipt Date: 20240131
  Transmission Date: 20240409
  Serious: Yes (Other)
  Sender: FDA-Public Use
  Company Number: CH-BEH-2021129130

PATIENT
  Sex: Female

DRUGS (4)
  1. PRIVIGEN [Suspect]
     Active Substance: HUMAN IMMUNOGLOBULIN G
     Indication: Small fibre neuropathy
     Dosage: 2 GRAM PER KILOGRAM
     Route: 065
     Dates: start: 20210127, end: 20210203
  2. PRIVIGEN [Suspect]
     Active Substance: HUMAN IMMUNOGLOBULIN G
     Indication: Postural orthostatic tachycardia syndrome
  3. PRIVIGEN [Suspect]
     Active Substance: HUMAN IMMUNOGLOBULIN G
     Indication: Autonomic nervous system imbalance
  4. KINERET [Concomitant]
     Active Substance: ANAKINRA
     Indication: Body temperature increased
     Dosage: 100 MILLIGRAM, QD
     Route: 058
     Dates: start: 202101

REACTIONS (9)
  - Headache [Unknown]
  - No adverse event [Unknown]
  - Off label use [Unknown]
  - Therapeutic response unexpected [Unknown]
  - Tachycardia [Unknown]
  - Hypotension [Unknown]
  - Poor venous access [Unknown]
  - Superinfection [Recovered/Resolved]
  - Superinfection [Recovered/Resolved]

NARRATIVE: CASE EVENT DATE: 20210201
